FAERS Safety Report 7133177-8 (Version None)
Quarter: 2010Q4

REPORT INFORMATION
  Report Type: 
  Country: None (occurrence: None)
  Receive Date: 20101117
  Receipt Date: 20101101
  Transmission Date: 20110411
  Serious: Yes (Other)
  Sender: FDA-Public Use
  Company Number: 021315

PATIENT
  Sex: Female

DRUGS (1)
  1. CIMZIA [Suspect]
     Indication: RHEUMATOID ARTHRITIS
     Dosage: 200 MG 1X/2 WEEKS; SUBCUTANEOUS
     Route: 058
     Dates: start: 20091002, end: 20100624

REACTIONS (1)
  - RASH GENERALISED [None]
